FAERS Safety Report 12977871 (Version 1)
Quarter: 2016Q4

REPORT INFORMATION
  Report Type: Report from Study
  Country: MX (occurrence: MX)
  Receive Date: 20161128
  Receipt Date: 20161128
  Transmission Date: 20170207
  Serious: Yes (Death)
  Sender: FDA-Public Use
  Company Number: PHHY2016MX104143

PATIENT
  Sex: Female

DRUGS (1)
  1. DIOVAN [Suspect]
     Active Substance: VALSARTAN
     Indication: BLOOD PRESSURE INCREASED
     Dosage: 1 DF (VALSARTAN 80MG), QD
     Route: 065

REACTIONS (6)
  - Bone decalcification [Unknown]
  - Hypoacusis [Unknown]
  - Gait disturbance [Unknown]
  - Death [Fatal]
  - Phlebitis [Unknown]
  - Limb discomfort [Unknown]
